FAERS Safety Report 18180758 (Version 1)
Quarter: 2020Q3

REPORT INFORMATION
  Report Type: Spontaneous
  Country: US (occurrence: US)
  Receive Date: 20200820
  Receipt Date: 20200820
  Transmission Date: 20201103
  Serious: Yes (Death)
  Sender: FDA-Public Use
  Company Number: None

PATIENT
  Age: 72 Year
  Sex: Male

DRUGS (3)
  1. APAP 325MG [Concomitant]
  2. ACYCLOVIR 400MG [Concomitant]
     Active Substance: ACYCLOVIR
  3. REVLIMID [Suspect]
     Active Substance: LENALIDOMIDE
     Indication: PLASMA CELL MYELOMA
     Dosage: ?          OTHER FREQUENCY:QD X21/28D;?
     Route: 048
     Dates: start: 20190417, end: 20190927

REACTIONS (3)
  - Cough [None]
  - Pancytopenia [None]
  - Oedema peripheral [None]

NARRATIVE: CASE EVENT DATE: 20191011
